FAERS Safety Report 12231973 (Version 2)
Quarter: 2016Q2

REPORT INFORMATION
  Report Type: Spontaneous
  Country: US (occurrence: US)
  Receive Date: 20160401
  Receipt Date: 20160406
  Transmission Date: 20160815
  Serious: Yes (Hospitalization)
  Sender: FDA-Public Use
  Company Number: US-UNITED THERAPEUTICS-UNT-2016-004968

PATIENT
  Sex: Male

DRUGS (1)
  1. REMODULIN [Suspect]
     Active Substance: TREPROSTINIL
     Indication: PULMONARY ARTERIAL HYPERTENSION
     Dosage: 0.0348 ?G/KG, CONTINUING
     Route: 058
     Dates: start: 20160212

REACTIONS (5)
  - Incorrect dose administered [Unknown]
  - Pain [Unknown]
  - Dizziness [Unknown]
  - Medication error [Unknown]
  - Headache [Unknown]

NARRATIVE: CASE EVENT DATE: 20160324
